APPROVED DRUG PRODUCT: NITROFURANTOIN
Active Ingredient: NITROFURANTOIN
Strength: 50MG
Dosage Form/Route: TABLET;ORAL
Application: A080003 | Product #001
Applicant: ELKINS SINN DIV AH ROBINS CO INC
Approved: Approved Prior to Jan 1, 1982 | RLD: No | RS: No | Type: DISCN